FAERS Safety Report 20951925 (Version 3)
Quarter: 2022Q2

REPORT INFORMATION
  Report Type: Spontaneous
  Country: LT (occurrence: LT)
  Receive Date: 20220613
  Receipt Date: 20220622
  Transmission Date: 20220721
  Serious: Yes (Hospitalization, Other)
  Sender: FDA-Public Use
  Company Number: LT-NOVARTISPH-NVSC2022LT131740

PATIENT
  Age: 48 Year
  Sex: Female

DRUGS (3)
  1. OCTREOTIDE [Suspect]
     Active Substance: OCTREOTIDE
     Indication: Carcinoid syndrome
     Dosage: 30 MG, 21D
     Route: 065
     Dates: start: 20190305, end: 2019
  2. OCTREOTIDE [Suspect]
     Active Substance: OCTREOTIDE
     Dosage: 30 MG, 21D
     Route: 065
     Dates: start: 20191108
  3. OCTREOTIDE [Suspect]
     Active Substance: OCTREOTIDE

REACTIONS (7)
  - Sepsis [Unknown]
  - Therapeutic response shortened [Unknown]
  - Asthenia [Unknown]
  - Pain [Unknown]
  - Diarrhoea [Unknown]
  - Erythema [Not Recovered/Not Resolved]
  - Flushing [Not Recovered/Not Resolved]

NARRATIVE: CASE EVENT DATE: 20220222
